FAERS Safety Report 14276049 (Version 3)
Quarter: 2018Q4

REPORT INFORMATION
  Report Type: Spontaneous
  Country: US (occurrence: US)
  Receive Date: 20171212
  Receipt Date: 20181008
  Transmission Date: 20190204
  Serious: Yes (Life-Threatening, Other)
  Sender: FDA-Public Use
  Company Number: US-PFIZER INC-2017524304

PATIENT
  Age: 20 Year
  Sex: Male

DRUGS (3)
  1. VINCRISTINE [Concomitant]
     Active Substance: VINCRISTINE
     Indication: ANAPLASTIC LARGE-CELL LYMPHOMA
     Dosage: 2 MG, UNK
  2. METHOTREXATE SODIUM. [Suspect]
     Active Substance: METHOTREXATE SODIUM
     Dosage: 60 MG/M2, UNK
     Route: 058
  3. ONDANSETRON [Concomitant]
     Active Substance: ONDANSETRON
     Dosage: 8 MG, UNK

REACTIONS (1)
  - Anaphylactic reaction [Recovered/Resolved]
